FAERS Safety Report 8238816-6 (Version None)
Quarter: 2012Q1

REPORT INFORMATION
  Report Type: 
  Country: None (occurrence: None)
  Receive Date: 20120327
  Receipt Date: 20120321
  Transmission Date: 20120608
  Serious: Yes (Other)
  Sender: FDA-Public Use
  Company Number: CHPA2012GB005194

PATIENT
  Age: 60 Year
  Sex: Male
  Weight: 90 kg

DRUGS (15)
  1. BISOPROLOL FUMARATE [Concomitant]
     Dosage: UNK, UNK
     Dates: start: 20111121
  2. ENALAPRIL MALEATE [Concomitant]
     Dosage: UNK, UNK
     Dates: start: 20111121
  3. FUROSEMIDE [Concomitant]
     Dosage: UNK, UNK
     Dates: start: 20111121
  4. ASCORBIC ACID [Concomitant]
     Dosage: UNK, UNK
     Dates: start: 20111121
  5. DIPYRIDAMOLE [Concomitant]
     Dosage: UNK, UNK
     Dates: start: 20111121
  6. SIMVASTATIN [Concomitant]
     Dosage: UNK, UNK
     Dates: start: 20111121
  7. FERROUS SULFATE TAB [Suspect]
     Dosage: UNK, UNK
     Dates: start: 20120309
  8. ASPIRIN [Concomitant]
     Dosage: UNK, UNK
     Dates: start: 20111121
  9. CARBIMAZOLE [Concomitant]
     Dosage: UNK, UNK
     Dates: start: 20111121
  10. LERCANIDIPINE [Concomitant]
     Dosage: UNK, UNK
     Dates: start: 20111219, end: 20111220
  11. VITAMIN B NOS [Concomitant]
     Dosage: UNK, UNK
     Dates: start: 20111121
  12. ACETAMINOPHEN [Concomitant]
     Dosage: UNK, UNK
     Dates: start: 20120220, end: 20120303
  13. LANSOPRAZOLE [Concomitant]
     Dosage: UNK, UNK
     Dates: start: 20111121
  14. NOVOMIX [Concomitant]
     Dosage: UNK, UNK
     Dates: start: 20111121
  15. PHOLCODINE [Concomitant]
     Dosage: UNK, UNK
     Dates: start: 20120220, end: 20120301

REACTIONS (2)
  - DRUG INTOLERANCE [None]
  - DRUG ERUPTION [None]
